FAERS Safety Report 4815382-6 (Version None)
Quarter: 2005Q4

REPORT INFORMATION
  Report Type: 
  Country: None (occurrence: None)
  Receive Date: 20051027
  Receipt Date: 20051021
  Transmission Date: 20060501
  Serious: Yes (Other)
  Sender: FDA-Public Use
  Company Number: 12191

PATIENT
  Age: 67 Year
  Sex: Female

DRUGS (7)
  1. AREDIA [Suspect]
  2. ZOLEDRONIC ACID [Suspect]
     Indication: METASTATIC NEOPLASM
  3. TAMOXIFEN [Concomitant]
  4. DOXORUBICIN HCL [Concomitant]
  5. LETROSOL [Concomitant]
  6. ANASTROZOLE [Concomitant]
  7. FULVESTRANT [Concomitant]

REACTIONS (1)
  - OSTEONECROSIS [None]
